FAERS Safety Report 9513000 (Version 6)
Quarter: 2019Q4

REPORT INFORMATION
  Report Type: Spontaneous
  Country: US (occurrence: US)
  Receive Date: 20130910
  Receipt Date: 20191028
  Transmission Date: 20200122
  Serious: Yes (Other)
  Sender: FDA-Public Use
  Company Number: US-PFIZER INC-2013258592

PATIENT
  Age: 64 Year
  Sex: Female
  Weight: 112 kg

DRUGS (9)
  1. LYRICA [Suspect]
     Active Substance: PREGABALIN
     Dosage: 75 MG, ALTERNATE DAY
     Route: 048
     Dates: start: 2013, end: 2013
  2. LYRICA [Suspect]
     Active Substance: PREGABALIN
     Dosage: 225 MG, DAILY (1 CAPSULE IN THE MORNING, 2 CAPSULES BY MOUTH IN THE EVENING)
     Route: 048
  3. LYRICA [Suspect]
     Active Substance: PREGABALIN
     Indication: FIBROMYALGIA
     Dosage: 75 MG, 2X/DAY
     Route: 048
     Dates: start: 2007
  4. LYRICA [Suspect]
     Active Substance: PREGABALIN
     Indication: PAIN
     Dosage: 75 MG, ALTERNATE DAY
     Route: 048
     Dates: start: 2013, end: 2013
  5. LYRICA [Suspect]
     Active Substance: PREGABALIN
     Dosage: 75 MG, 2X/DAY
     Route: 048
     Dates: start: 2013, end: 2013
  6. LYRICA [Suspect]
     Active Substance: PREGABALIN
     Dosage: 75 MG, EVERY TWO ALTERNATE DAYS FOR A WEEK
     Route: 048
     Dates: start: 2013, end: 2013
  7. LYRICA [Suspect]
     Active Substance: PREGABALIN
     Dosage: 75 MG, 1X/DAY
     Route: 048
     Dates: start: 2013, end: 2013
  8. LYRICA [Suspect]
     Active Substance: PREGABALIN
     Indication: PAIN IN EXTREMITY
     Dosage: 75 MG, 1X/DAY
     Route: 048
     Dates: start: 2013, end: 2013
  9. HYDROCHLOROTHIAZIDE. [Concomitant]
     Active Substance: HYDROCHLOROTHIAZIDE
     Indication: BLOOD PRESSURE ABNORMAL
     Dosage: 12.5 MG, UNK

REACTIONS (10)
  - Hypertension [Unknown]
  - Feeling abnormal [Unknown]
  - Drug ineffective [Unknown]
  - Body height decreased [Unknown]
  - Skin disorder [Recovered/Resolved]
  - Burning sensation [Recovered/Resolved]
  - Skin burning sensation [Unknown]
  - Somnolence [Unknown]
  - Increased appetite [Unknown]
  - Osteoarthritis [Unknown]

NARRATIVE: CASE EVENT DATE: 2013
